FAERS Safety Report 19958205 (Version 4)
Quarter: 2022Q1

REPORT INFORMATION
  Report Type: Report from Study
  Country: ES (occurrence: ES)
  Receive Date: 20211015
  Receipt Date: 20220311
  Transmission Date: 20220423
  Serious: Yes (Other)
  Sender: FDA-Public Use
  Company Number: NVSC2021ES231881

PATIENT
  Age: 53 Year
  Sex: Female
  Weight: 65.5 kg

DRUGS (7)
  1. ALPELISIB [Suspect]
     Active Substance: ALPELISIB
     Indication: Breast cancer
     Dosage: 200 MG
     Route: 048
     Dates: start: 20210720, end: 20210727
  2. ALPELISIB [Suspect]
     Active Substance: ALPELISIB
     Dosage: UNK
     Route: 048
     Dates: start: 20210810, end: 20211005
  3. ALPELISIB [Suspect]
     Active Substance: ALPELISIB
     Dosage: UNK
     Route: 048
  4. FULVESTRANT [Suspect]
     Active Substance: FULVESTRANT
     Indication: Breast cancer
     Dosage: 500 MG
     Route: 030
     Dates: start: 20210713
  5. ENALAPRIL [Concomitant]
     Active Substance: ENALAPRIL
     Indication: Hypertension
     Dosage: 10 MG
     Route: 065
     Dates: start: 202106
  6. GOSERELIN [Concomitant]
     Active Substance: GOSERELIN
     Indication: Prophylaxis
     Dosage: UNK
     Route: 065
     Dates: start: 201910
  7. NOVORAPID [Concomitant]
     Active Substance: INSULIN ASPART
     Indication: Diabetes mellitus management
     Dosage: UNK
     Route: 065
     Dates: start: 20210727

REACTIONS (1)
  - Pulmonary embolism [Recovered/Resolved]

NARRATIVE: CASE EVENT DATE: 20211005
